FAERS Safety Report 16164934 (Version 2)
Quarter: 2019Q2

REPORT INFORMATION
  Report Type: Spontaneous
  Country: US (occurrence: US)
  Receive Date: 20190405
  Receipt Date: 20190510
  Transmission Date: 20190711
  Serious: Yes (Other)
  Sender: FDA-Public Use
  Company Number: US-NAPPMUNDI-USA-2019-0146743

PATIENT
  Sex: Male

DRUGS (1)
  1. OXYCONTIN [Suspect]
     Active Substance: OXYCODONE HYDROCHLORIDE
     Indication: PAIN
     Dosage: 20 MG, BID
     Route: 048

REACTIONS (7)
  - Drug dependence [Unknown]
  - HIV infection [Unknown]
  - Gastric bypass [Unknown]
  - Coronary artery disease [Unknown]
  - Product residue present [Not Recovered/Not Resolved]
  - Drug tolerance [Unknown]
  - Inadequate analgesia [Unknown]
